FAERS Safety Report 8238872-5 (Version None)
Quarter: 2012Q1

REPORT INFORMATION
  Report Type: 
  Country: None (occurrence: None)
  Receive Date: 20120327
  Receipt Date: 20120319
  Transmission Date: 20120608
  Serious: Yes (Other)
  Sender: FDA-Public Use
  Company Number: CHPA2012BR005294

PATIENT
  Sex: Female

DRUGS (11)
  1. ALLEGRA-D 12 HOUR [Concomitant]
     Indication: SINUSITIS
     Dosage: UNK DF, Q12H
  2. METFORMIN HCL [Concomitant]
     Dosage: 850 MG, BID
     Route: 048
  3. DIAMICRON [Concomitant]
     Dosage: 60 MG, BID
     Route: 048
  4. AZITHROMYCIN DIHYDRATE [Concomitant]
     Indication: SINUSITIS
     Dosage: UNK, UNK
  5. TAMIRAM [Concomitant]
     Indication: SINUSITIS
     Dosage: UNK, UNK
  6. TRIMEDAL TOSSE [Suspect]
     Indication: COUGH
  7. METFORMIN HCL [Concomitant]
     Indication: DIABETES MELLITUS
     Dosage: 500 MG, BID
     Route: 048
  8. GALVUS MET [Concomitant]
     Dosage: 50/1000MG, BID
     Route: 048
  9. DIAMICRON [Concomitant]
     Dosage: 60 MG, BID
     Route: 048
  10. BISOLVON [Concomitant]
     Indication: PRODUCTIVE COUGH
     Dosage: UNK, UNK
  11. AMARYL [Concomitant]
     Dosage: 6 MG, QD
     Route: 048

REACTIONS (4)
  - BLOOD GLUCOSE INCREASED [None]
  - DIABETES MELLITUS [None]
  - VARICOSE VEIN [None]
  - BLOOD GLUCOSE FLUCTUATION [None]
